FAERS Safety Report 9158511 (Version 1)
Quarter: 2013Q1

REPORT INFORMATION
  Report Type: Spontaneous
  Country: PT (occurrence: PT)
  Receive Date: 20130312
  Receipt Date: 20130312
  Transmission Date: 20140127
  Serious: Yes (Life-Threatening, Hospitalization)
  Sender: FDA-Public Use
  Company Number: PT-B.I. PHARMACEUTICALS,INC./RIDGEFIELD-2013-BI-06434PO

PATIENT
  Age: 88 Year
  Sex: Male

DRUGS (2)
  1. PRADAXA [Suspect]
     Indication: ATRIAL FIBRILLATION
     Dates: start: 20130303
  2. VARFINE / WARFARIN [Concomitant]
     Indication: ATRIAL FIBRILLATION
     Dates: end: 20130228

REACTIONS (1)
  - Haemorrhagic stroke [Not Recovered/Not Resolved]
